FAERS Safety Report 5860593-4 (Version None)
Quarter: 2008Q3

REPORT INFORMATION
  Report Type: 
  Country: None (occurrence: None)
  Receive Date: 20080826
  Receipt Date: 20080811
  Transmission Date: 20090109
  Serious: Yes (Hospitalization, Other)
  Sender: FDA-Public Use
  Company Number: MIN-00395

PATIENT
  Age: 15 Year
  Sex: Male

DRUGS (3)
  1. MINOCYCLINE HCL [Suspect]
     Indication: ACNE
     Dosage: 100 MG QD
  2. IBUPROFEN [Concomitant]
  3. NAPROXEN [Concomitant]

REACTIONS (19)
  - AUTOIMMUNE HEPATITIS [None]
  - COAGULOPATHY [None]
  - CONTUSION [None]
  - ECCHYMOSIS [None]
  - EPISTAXIS [None]
  - FIBROMUSCULAR DYSPLASIA [None]
  - GILBERT'S SYNDROME [None]
  - HEPATIC CIRRHOSIS [None]
  - HYPERTENSION [None]
  - INCREASED TENDENCY TO BRUISE [None]
  - INTERNATIONAL NORMALISED RATIO INCREASED [None]
  - KIDNEY ENLARGEMENT [None]
  - LIVER PALPABLE SUBCOSTAL [None]
  - LUPUS-LIKE SYNDROME [None]
  - PETECHIAE [None]
  - RENAL ARTERY STENOSIS [None]
  - SPLENOMEGALY [None]
  - SYSTEMIC LUPUS ERYTHEMATOSUS [None]
  - THROMBOCYTOPENIA [None]
